FAERS Safety Report 9549674 (Version 1)
Quarter: 2013Q3

REPORT INFORMATION
  Report Type: Report from Study
  Country: DE (occurrence: DE)
  Receive Date: 20130924
  Receipt Date: 20130924
  Transmission Date: 20140515
  Serious: Yes (Other)
  Sender: FDA-Public Use
  Company Number: DE-ROCHE-1278800

PATIENT
  Age: 50 Year
  Sex: Male

DRUGS (4)
  1. INTERFERON ALFA-2A [Suspect]
     Indication: HEPATITIS C
     Route: 065
     Dates: start: 1999, end: 1999
  2. INTERFERON ALFA-2A [Suspect]
     Route: 065
     Dates: end: 2013
  3. RIBAVIRIN [Suspect]
     Indication: HEPATITIS C
     Route: 065
     Dates: start: 1999, end: 1999
  4. RIBAVIRIN [Suspect]
     Route: 065
     Dates: end: 2013

REACTIONS (4)
  - Thrombocytopenia [Unknown]
  - Melaena [Unknown]
  - Blood albumin decreased [Unknown]
  - No therapeutic response [Unknown]
